FAERS Safety Report 9829639 (Version 1)
Quarter: 2014Q1

REPORT INFORMATION
  Report Type: Spontaneous
  Country: US (occurrence: US)
  Receive Date: 20140120
  Receipt Date: 20140120
  Transmission Date: 20141002
  Serious: No
  Sender: FDA-Public Use
  Company Number: US-BIOGENIDEC-2014BI004577

PATIENT
  Sex: Female

DRUGS (9)
  1. TECFIDERA [Suspect]
     Indication: MULTIPLE SCLEROSIS
     Route: 048
     Dates: start: 20130419
  2. FLUCONAZOLE [Concomitant]
  3. ALDACTONE [Concomitant]
  4. CEFDINIR [Concomitant]
  5. PROSCAR [Concomitant]
  6. ORTHO-TRI-CYCLEN LO [Concomitant]
  7. AUGMENTIN [Concomitant]
  8. BACLOFEN [Concomitant]
  9. DYMISTA [Concomitant]

REACTIONS (4)
  - Sinusitis [Unknown]
  - Cystitis [Unknown]
  - Nasopharyngitis [Unknown]
  - Bronchitis [Unknown]
